FAERS Safety Report 13782541 (Version 4)
Quarter: 2018Q1

REPORT INFORMATION
  Report Type: Spontaneous
  Country: JP (occurrence: JP)
  Receive Date: 20170724
  Receipt Date: 20180116
  Transmission Date: 20180508
  Serious: Yes (Other)
  Sender: FDA-Public Use
  Company Number: JP-009507513-1707JPN000640J

PATIENT
  Age: 66 Year
  Sex: Female
  Weight: 44 kg

DRUGS (9)
  1. SERENACE [Concomitant]
     Active Substance: HALOPERIDOL
     Indication: PROPHYLAXIS
     Dosage: 0.5 DF, QD
  2. NEXIUM [Concomitant]
     Active Substance: ESOMEPRAZOLE MAGNESIUM
     Indication: PROPHYLAXIS
     Dosage: 1 DF, QD
     Route: 048
  3. CALONAL [Concomitant]
     Active Substance: ACETAMINOPHEN
     Indication: LUNG ADENOCARCINOMA
     Dosage: 1 DF, QID
     Route: 048
  4. NOVAMIN (PROCHLORPERAZINE MALEATE) [Concomitant]
     Active Substance: PROCHLORPERAZINE MALEATE
     Indication: PROPHYLAXIS
     Dosage: 1 DF, TID
     Route: 048
  5. KEYTRUDA [Suspect]
     Active Substance: PEMBROLIZUMAB
     Indication: LUNG ADENOCARCINOMA
     Dosage: 200 MG, Q3W
     Route: 041
     Dates: start: 20170516, end: 20170606
  6. OXYCONTIN [Concomitant]
     Active Substance: OXYCODONE HYDROCHLORIDE
     Indication: LUNG ADENOCARCINOMA
     Dosage: 1 DF, TID
     Route: 048
  7. OXINORM (OXYCODONE HYDROCHLORIDE) [Concomitant]
     Active Substance: OXYCODONE HYDROCHLORIDE
     Indication: LUNG ADENOCARCINOMA
     Dosage: 1 DF, PRN
     Route: 048
  8. REBAMIPIDE [Concomitant]
     Active Substance: REBAMIPIDE
     Indication: PROPHYLAXIS
     Dosage: 1 DF, QID
     Route: 048
  9. MEDICON [Concomitant]
     Active Substance: DEXTROMETHORPHAN HYDROBROMIDE
     Indication: COUGH
     Dosage: 1 DF, TID
     Route: 048

REACTIONS (2)
  - Deep vein thrombosis [Not Recovered/Not Resolved]
  - Decreased appetite [Not Recovered/Not Resolved]

NARRATIVE: CASE EVENT DATE: 20170616
